FAERS Safety Report 8416691-4 (Version None)
Quarter: 2012Q2

REPORT INFORMATION
  Report Type: 
  Country: None (occurrence: None)
  Receive Date: 20120606
  Receipt Date: 20120529
  Transmission Date: 20120825
  Serious: Yes (Other)
  Sender: FDA-Public Use
  Company Number: PHHY2012HU028930

PATIENT
  Age: 64 Year
  Sex: Female

DRUGS (7)
  1. CORINFAR [Concomitant]
     Dosage: 20 MG, BID
     Dates: start: 20000101
  2. CYNT [Concomitant]
     Dosage: 0.4 MG, BID
     Dates: start: 20000101
  3. COVEREX [Concomitant]
     Dosage: 4 MG, BID
     Dates: start: 20000101
  4. LETROZOLE [Suspect]
     Indication: BREAST CANCER
     Dosage: 2.5 MG, DAILY
     Dates: start: 20080116, end: 20080313
  5. XALATAN [Concomitant]
  6. PANTOPRAZOLE [Concomitant]
     Dosage: 20 MG, QD
  7. TISASEN [Concomitant]
     Dosage: 2 DF, BID

REACTIONS (1)
  - MENTAL DISORDER [None]
